FAERS Safety Report 17412331 (Version 2)
Quarter: 2020Q3

REPORT INFORMATION
  Report Type: Other
  Country: AT (occurrence: AT)
  Receive Date: 20200213
  Receipt Date: 20200914
  Transmission Date: 20201102
  Serious: Yes (Hospitalization)
  Sender: FDA-Public Use
  Company Number: AT-ROCHE-2307899

PATIENT
  Age: 53 Year
  Sex: Female
  Weight: 70 kg

DRUGS (15)
  1. XGEVA [Suspect]
     Active Substance: DENOSUMAB
     Indication: HER2 POSITIVE BREAST CANCER
     Route: 058
     Dates: start: 201903
  2. GUTTALAX [SODIUM PICOSULFATE] [Concomitant]
     Active Substance: SODIUM PICOSULFATE
     Dates: start: 20190106
  3. FORTECORTIN [Concomitant]
     Active Substance: DEXAMETHASONE
     Dates: start: 20181204
  4. PASPERTIN [Concomitant]
     Dates: start: 20190117
  5. MOLAXOLE [Concomitant]
     Active Substance: POLYETHYLENE GLYCOL 3350\POTASSIUM CHLORIDE\SODIUM BICARBONATE\SODIUM CHLORIDE
     Dates: start: 20190106
  6. CALCIDURAN [Concomitant]
     Active Substance: ASCORBIC ACID\CALCIUM PHOSPHATE\CHOLECALCIFEROL\CITRIC ACID MONOHYDRATE
     Dates: start: 20190412
  7. TAXOTERE [Suspect]
     Active Substance: DOCETAXEL
     Indication: HER2 POSITIVE BREAST CANCER
     Dosage: ALSO RECEIVED DOSE ON 27/DEC/2018?MOST RECENT DOSE PRIOR TO CEPHALEA AND PAIN IN THE LEFT CALF : 17/
     Route: 042
     Dates: start: 20181205
  8. ZOVIRAX [Concomitant]
     Active Substance: ACYCLOVIR
     Indication: ORAL HERPES
     Dates: start: 20191015, end: 20191022
  9. PERTUZUMAB. [Suspect]
     Active Substance: PERTUZUMAB
     Indication: HER2 POSITIVE BREAST CANCER
     Dosage: MOST RECENT DOSE PRIOR TO CEPHALEA AND PAIN IN THE LEFT CALF: 27/DEC/2018
     Route: 042
     Dates: start: 20181205
  10. CANDESARTAN HCT [Concomitant]
     Active Substance: CANDESARTAN CILEXETIL\HYDROCHLOROTHIAZIDE
     Dates: start: 20190820
  11. MENCORD PLUS [Concomitant]
     Active Substance: HYDROCHLOROTHIAZIDE\OLMESARTAN MEDOXOMIL
     Dosage: 20/12,5MG
     Dates: start: 20190415
  12. FORTECORTIN [Concomitant]
     Active Substance: DEXAMETHASONE
     Dosage: ONGOING = CHECKED
     Dates: start: 20181204
  13. FEMARA [Suspect]
     Active Substance: LETROZOLE
     Indication: HER2 POSITIVE BREAST CANCER
     Dosage: MOST RECENT DOSE ON 03/APR/2019?MOST RECENT DOSE PRIOR TO INTERMITTENT INCREASE IN BLOOD PRESSURE ON
     Route: 048
     Dates: start: 20190321
  14. ANTIFLAT [Concomitant]
     Dates: start: 20181227
  15. NEULASTA [Concomitant]
     Active Substance: PEGFILGRASTIM
     Dates: start: 20181204

REACTIONS (6)
  - Arthralgia [Recovered/Resolved]
  - Blood pressure increased [Recovered/Resolved]
  - Hypertensive crisis [Recovered/Resolved]
  - Headache [Recovering/Resolving]
  - Tonsillitis [Recovered/Resolved]
  - Pain in extremity [Unknown]

NARRATIVE: CASE EVENT DATE: 20190415
